FAERS Safety Report 18255268 (Version 2)
Quarter: 2020Q4

REPORT INFORMATION
  Report Type: Spontaneous
  Country: CA (occurrence: CA)
  Receive Date: 20200911
  Receipt Date: 20201021
  Transmission Date: 20210113
  Serious: Yes (Other)
  Sender: FDA-Public Use
  Company Number: CA-PFIZER INC-2020349617

PATIENT
  Age: 62 Year
  Sex: Female

DRUGS (1)
  1. METHOTREXATE SODIUM. [Suspect]
     Active Substance: METHOTREXATE SODIUM
     Dosage: UNK
     Route: 065
     Dates: start: 2016, end: 2016

REACTIONS (5)
  - Lung disorder [Unknown]
  - Cataract [Unknown]
  - Interstitial lung disease [Not Recovered/Not Resolved]
  - Diabetes mellitus [Unknown]
  - Neuralgia [Unknown]

NARRATIVE: CASE EVENT DATE: 20200819
